FAERS Safety Report 16399797 (Version 1)
Quarter: 2019Q2

REPORT INFORMATION
  Report Type: Spontaneous
  Country: US (occurrence: US)
  Receive Date: 20190606
  Receipt Date: 20190606
  Transmission Date: 20190711
  Serious: No
  Sender: FDA-Public Use
  Company Number: US-SA-2019SA152084

PATIENT
  Age: 40 Year
  Sex: Female

DRUGS (4)
  1. FLUOCINONIDE F [Concomitant]
  2. TRIAMCINOLONE [Concomitant]
     Active Substance: TRIAMCINOLONE
  3. DUPIXENT [Suspect]
     Active Substance: DUPILUMAB
     Indication: ASTHMA
     Dosage: 300 MG, QOW
     Route: 058
     Dates: start: 20190516
  4. SPIRONOLACTON-RATIOPHARM [Concomitant]

REACTIONS (1)
  - Asthma [Not Recovered/Not Resolved]
